FAERS Safety Report 9379260 (Version 1)
Quarter: 2013Q3

REPORT INFORMATION
  Report Type: Spontaneous
  Country: GB (occurrence: GB)
  Receive Date: 20130702
  Receipt Date: 20130702
  Transmission Date: 20140515
  Serious: Yes (Other)
  Sender: FDA-Public Use
  Company Number: GB-JNJFOC-20130614267

PATIENT
  Sex: Female

DRUGS (13)
  1. CELEST [Suspect]
     Indication: PRODUCT USED FOR UNKNOWN INDICATION
     Route: 048
  2. COTRIMOXAZOLE [Concomitant]
     Dosage: 80/400
     Route: 065
  3. ERYTHROMYCIN [Concomitant]
     Dosage: 250
     Route: 065
  4. LACTULOSE [Concomitant]
     Dosage: 250
     Route: 065
  5. MACROGOL [Concomitant]
     Route: 065
  6. MAGNESIUM ASPARTATE [Concomitant]
     Route: 065
  7. OMEPRAZOLE [Concomitant]
     Route: 065
  8. SODIUM BICARBONATE [Concomitant]
     Route: 065
  9. PREDNISOLONE [Concomitant]
     Route: 065
  10. MYCOPHENOLATE [Concomitant]
     Route: 065
  11. ASPIRIN [Concomitant]
     Route: 065
  12. CALCICHEW FORTE [Concomitant]
     Dosage: 3-4 TIMES ONCE A DAY (VARIABLE DEPENDING ON RESULTS)
     Route: 065
  13. VITAMIN D [Concomitant]
     Route: 065

REACTIONS (1)
  - Renal transplant [Recovered/Resolved]
